FAERS Safety Report 9329735 (Version 1)
Quarter: 2013Q2

REPORT INFORMATION
  Report Type: Spontaneous
  Country: US (occurrence: US)
  Receive Date: 20130604
  Receipt Date: 20130604
  Transmission Date: 20140414
  Serious: No
  Sender: FDA-Public Use
  Company Number: US-SANOFI-AVENTIS-2013SA035213

PATIENT
  Age: 46 Year
  Sex: Male

DRUGS (2)
  1. LANTUS SOLOSTAR [Suspect]
     Indication: DIABETES MELLITUS
     Dosage: PRODUCT END DATE- ABOUT 6 MONTHS AGO?DURATION FOR ABOUT 2 YEARS
     Dates: start: 2011
  2. SOLOSTAR [Suspect]
     Indication: DIABETES MELLITUS
     Dosage: PRODUCT END DATE- ABOUT 6 MONTHS AGO?DURATION FOR ABOUT 2 YEARS
     Dates: start: 2011

REACTIONS (4)
  - Restlessness [Recovered/Resolved]
  - Night sweats [Recovered/Resolved]
  - Pruritus [Recovered/Resolved]
  - Feeling abnormal [Recovered/Resolved]
